FAERS Safety Report 5707993-0 (Version None)
Quarter: 2008Q2

REPORT INFORMATION
  Report Type: 
  Country: None (occurrence: None)
  Receive Date: 20080417
  Receipt Date: 20080411
  Transmission Date: 20081010
  Serious: Yes (Other)
  Sender: FDA-Public Use
  Company Number: US-BAYER-200811459BCC

PATIENT
  Age: 75 Year
  Sex: Female
  Weight: 61 kg

DRUGS (8)
  1. ASPIRIN [Suspect]
     Indication: ISCHAEMIC HEART DISEASE PROPHYLAXIS
     Dosage: TOTAL DAILY DOSE: 81 MG  UNIT DOSE: 81 MG
     Route: 048
  2. ONE A DAY CHOLESTEROL PLUS [Suspect]
     Indication: VITAMIN SUPPLEMENTATION
     Dosage: TOTAL DAILY DOSE: 1 DF
     Route: 048
  3. NEXIUM [Concomitant]
  4. OSCAL [Concomitant]
  5. PLAVIX [Concomitant]
  6. LOTREL [Concomitant]
  7. ZETIA [Concomitant]
  8. GARLIC [Concomitant]
     Route: 048

REACTIONS (5)
  - ANAEMIA [None]
  - BLOOD CHOLESTEROL INCREASED [None]
  - EPISTAXIS [None]
  - HAEMORRHAGE [None]
  - ULCER [None]
